FAERS Safety Report 10674353 (Version 1)
Quarter: 2014Q4

REPORT INFORMATION
  Report Type: Spontaneous
  Country: IL (occurrence: None)
  Receive Date: 20141222
  Receipt Date: 20141222
  Transmission Date: 20150529
  Serious: Yes (Hospitalization)
  Sender: FDA-Public Use
  Company Number: ABR_01898_2014

PATIENT
  Age: 70 Year
  Sex: Female

DRUGS (3)
  1. LAMOTRIGINE (LAMOTRIGINE) [Suspect]
     Active Substance: LAMOTRIGINE
     Indication: TEMPORAL LOBE EPILEPSY
     Dosage: 1 WEEK 3 DAYS
     Route: 048
  2. LEVETIRACETAM (LEVETIRACETAM) [Suspect]
     Active Substance: LEVETIRACETAM
     Indication: TEMPORAL LOBE EPILEPSY
  3. VALPROATE [Suspect]
     Active Substance: VALPROIC ACID
     Indication: TEMPORAL LOBE EPILEPSY
     Route: 048

REACTIONS (14)
  - Disorientation [None]
  - Extrapyramidal disorder [None]
  - Leukocytosis [None]
  - Seizure [None]
  - Cognitive disorder [None]
  - Pruritus [None]
  - Fall [None]
  - Hashimoto^s encephalopathy [None]
  - Unresponsive to stimuli [None]
  - Drug hypersensitivity [None]
  - Nuclear magnetic resonance imaging brain abnormal [None]
  - Asterixis [None]
  - Rash generalised [None]
  - Polycythaemia [None]
